FAERS Safety Report 5965845-5 (Version None)
Quarter: 2008Q4

REPORT INFORMATION
  Report Type: 
  Country: None (occurrence: None)
  Receive Date: 20081125
  Receipt Date: 20081119
  Transmission Date: 20090506
  Serious: Yes (Hospitalization)
  Sender: FDA-Public Use
  Company Number: US-BIOGENIDEC-2008BI028827

PATIENT
  Age: 45 Year
  Sex: Male
  Weight: 65 kg

DRUGS (2)
  1. TYSABRI [Suspect]
     Indication: CROHN'S DISEASE
     Route: 042
     Dates: start: 20080613
  2. OXYCONTIN [Concomitant]
     Indication: ABDOMINAL PAIN

REACTIONS (3)
  - CATHETER THROMBOSIS [None]
  - CELLULITIS [None]
  - CHILLS [None]
